FAERS Safety Report 6849142-1 (Version None)
Quarter: 2010Q3

REPORT INFORMATION
  Report Type: 
  Country: None (occurrence: None)
  Receive Date: 20100716
  Receipt Date: 20100705
  Transmission Date: 20110219
  Serious: Yes (Other)
  Sender: FDA-Public Use
  Company Number: PHHY2010DE17679

PATIENT
  Sex: Male

DRUGS (3)
  1. EXFORGE [Suspect]
     Indication: HYPERTENSION
     Dosage: 1X1 (160/5 MG)
     Route: 048
     Dates: start: 20081001, end: 20090701
  2. EXFORGE [Suspect]
     Dosage: UNK
     Dates: start: 20081001, end: 20090701
  3. CONCOR [Concomitant]
     Indication: HYPERTENSION
     Dosage: UNK
     Dates: end: 20090801

REACTIONS (8)
  - ALANINE AMINOTRANSFERASE INCREASED [None]
  - ASPARTATE AMINOTRANSFERASE INCREASED [None]
  - BILE DUCT OBSTRUCTION [None]
  - BLOOD AMYLASE INCREASED [None]
  - CONDITION AGGRAVATED [None]
  - GAMMA-GLUTAMYLTRANSFERASE INCREASED [None]
  - HEPATIC ENZYME INCREASED [None]
  - INFLAMMATION [None]
